FAERS Safety Report 17137908 (Version 1)
Quarter: 2019Q4

REPORT INFORMATION
  Report Type: Spontaneous
  Country: US (occurrence: US)
  Receive Date: 20191119
  Receipt Date: 20191119
  Transmission Date: 20200122
  Serious: Yes (Other)
  Sender: FDA-Public Use
  Company Number: None

PATIENT
  Age: 78 Year
  Sex: Male
  Weight: 95.25 kg

DRUGS (1)
  1. ZOLPIDEM [Suspect]
     Active Substance: ZOLPIDEM TARTRATE
     Indication: INSOMNIA
     Route: 048
     Dates: start: 20170501, end: 20191018

REACTIONS (6)
  - Road traffic accident [None]
  - Confusional state [None]
  - Amnesia [None]
  - Therapy cessation [None]
  - Dizziness [None]
  - Intentional product misuse [None]

NARRATIVE: CASE EVENT DATE: 20190715
